FAERS Safety Report 12120545 (Version 1)
Quarter: 2016Q1

REPORT INFORMATION
  Report Type: Spontaneous
  Country: US (occurrence: US)
  Receive Date: 20160226
  Receipt Date: 20160226
  Transmission Date: 20160526
  Serious: Yes (Other)
  Sender: FDA-Public Use
  Company Number: US-SA-2016SA038301

PATIENT
  Age: 43 Year
  Sex: Female

DRUGS (1)
  1. AUBAGIO [Suspect]
     Active Substance: TERIFLUNOMIDE
     Route: 065
     Dates: start: 201307

REACTIONS (9)
  - Gastrointestinal disorder [Unknown]
  - Fatigue [Unknown]
  - Muscle spasms [Unknown]
  - Frequent bowel movements [Unknown]
  - Alopecia [Unknown]
  - Paraesthesia [Unknown]
  - Diarrhoea [Unknown]
  - Hypoaesthesia [Unknown]
  - Sepsis [Unknown]
